FAERS Safety Report 4459157-9 (Version None)
Quarter: 2004Q3

REPORT INFORMATION
  Report Type: 
  Country: None (occurrence: None)
  Receive Date: 20040927
  Receipt Date: 20040920
  Transmission Date: 20050211
  Serious: Yes (Death, Hospitalization)
  Sender: FDA-Public Use
  Company Number: 200412846EU

PATIENT
  Age: 89 Year
  Sex: Male

DRUGS (16)
  1. TRIATEC [Suspect]
     Indication: CARDIAC FAILURE
     Route: 048
     Dates: start: 20040402, end: 20040413
  2. KLEXANE [Suspect]
     Route: 058
     Dates: start: 20040326, end: 20040413
  3. PLENDIL [Suspect]
     Indication: HYPERTONIA
     Route: 048
     Dates: start: 20040326, end: 20040413
  4. LANSOPRAZOLE [Suspect]
     Dates: start: 20040402
  5. ATENOLOL [Suspect]
     Indication: ANGINA PECTORIS
     Route: 048
     Dates: end: 20040401
  6. ATENOLOL [Suspect]
     Indication: HYPERTONIA
     Route: 048
     Dates: end: 20040401
  7. ASPIRIN [Suspect]
     Route: 048
     Dates: start: 20040326, end: 20040413
  8. PLAVIX [Suspect]
     Route: 048
     Dates: start: 20040326, end: 20040413
  9. ACETAMINOPHEN [Concomitant]
  10. SIMVASTATIN [Concomitant]
  11. WARAN [Concomitant]
  12. NITROMEX [Concomitant]
  13. SPIRONOLACTONE [Concomitant]
  14. DEXTROPROPOXIFEN [Concomitant]
  15. FUROSEMIDE [Concomitant]
  16. IMDUR [Concomitant]

REACTIONS (16)
  - ANOREXIA [None]
  - BLOOD CREATINE PHOSPHOKINASE INCREASED [None]
  - BLOOD CREATININE INCREASED [None]
  - BLOOD PRESSURE DIASTOLIC DECREASED [None]
  - BODY TEMPERATURE INCREASED [None]
  - BRADYCARDIA [None]
  - C-REACTIVE PROTEIN INCREASED [None]
  - CARDIAC FAILURE [None]
  - DEPRESSED LEVEL OF CONSCIOUSNESS [None]
  - DRUG ERUPTION [None]
  - GENERAL PHYSICAL HEALTH DETERIORATION [None]
  - MARKEDLY REDUCED DIETARY INTAKE [None]
  - MYOCARDIAL INFARCTION [None]
  - NERVOUS SYSTEM DISORDER [None]
  - SEBORRHOEIC DERMATITIS [None]
  - VENTRICULAR DYSFUNCTION [None]
